FAERS Safety Report 5553418-8 (Version None)
Quarter: 2007Q4

REPORT INFORMATION
  Report Type: 
  Country: None (occurrence: None)
  Receive Date: 20071213
  Receipt Date: 20071211
  Transmission Date: 20080405
  Serious: Yes (Death, Other)
  Sender: FDA-Public Use
  Company Number: GB-BRISTOL-MYERS SQUIBB COMPANY-13988878

PATIENT
  Age: 59 Year
  Sex: Female

DRUGS (6)
  1. HYDREA [Suspect]
     Indication: HEPATIC CIRRHOSIS
     Dosage: DOSE REDUCED TO TWICE DAILY. 1 DOSAGE FORM = 0.5-1.5 GRAM.THERAPY START DATE PRE JUL 2006
     Route: 048
     Dates: start: 20060101, end: 20061030
  2. HYDREA [Suspect]
     Indication: PSORIASIS
     Dosage: DOSE REDUCED TO TWICE DAILY. 1 DOSAGE FORM = 0.5-1.5 GRAM.THERAPY START DATE PRE JUL 2006
     Route: 048
     Dates: start: 20060101, end: 20061030
  3. ACITRETIN [Concomitant]
     Indication: PSORIASIS
     Dosage: 1 DOSAGE FORM = 10-25 MG
     Route: 048
     Dates: start: 20060711, end: 20061030
  4. INSULIN [Concomitant]
     Indication: DIABETES MELLITUS
     Dosage: 1 DOSAGE FORM = 62 UNITS THERAPY START DATE = PRE JUL 2006
     Route: 058
     Dates: start: 20060101, end: 20061030
  5. AMLODIPINE [Concomitant]
     Indication: DIABETES MELLITUS
     Dosage: THERAPY START DATE = PRE JUL 2006
     Route: 048
     Dates: start: 20060101, end: 20061030
  6. AMLODIPINE [Concomitant]
     Indication: HYPERTENSION
     Dosage: THERAPY START DATE = PRE JUL 2006
     Route: 048
     Dates: start: 20060101, end: 20061030

REACTIONS (7)
  - ARTHRALGIA [None]
  - CEREBROVASCULAR ACCIDENT [None]
  - DIZZINESS [None]
  - MACROCYTOSIS [None]
  - MYOCARDIAL INFARCTION [None]
  - NAIL PIGMENTATION [None]
  - PIGMENTATION DISORDER [None]
